FAERS Safety Report 6665975-9 (Version None)
Quarter: 2010Q1

REPORT INFORMATION
  Report Type: 
  Country: None (occurrence: None)
  Receive Date: 20100330
  Receipt Date: 20100324
  Transmission Date: 20100710
  Serious: Yes (Other)
  Sender: FDA-Public Use
  Company Number: 2009SP033725

PATIENT
  Age: 25 Year
  Sex: Female

DRUGS (5)
  1. NUVARING [Suspect]
     Indication: DRUG USE FOR UNKNOWN INDICATION
  2. BETASERON [Suspect]
     Indication: DRUG USE FOR UNKNOWN INDICATION
     Dosage: 8 MIU;QOD;SC ; 4 MIU;QOD;SC
     Route: 058
     Dates: start: 20081215, end: 20090302
  3. BETASERON [Suspect]
     Indication: DRUG USE FOR UNKNOWN INDICATION
     Dosage: 8 MIU;QOD;SC ; 4 MIU;QOD;SC
     Route: 058
     Dates: start: 20091009
  4. PRENATAL OR (VITAMINS) [Concomitant]
  5. PERCOCET [Concomitant]

REACTIONS (5)
  - CAESAREAN SECTION [None]
  - DRUG EXPOSURE DURING PREGNANCY [None]
  - INJECTION SITE PAIN [None]
  - PREGNANCY WITH IMPLANT CONTRACEPTIVE [None]
  - PREMATURE LABOUR [None]
